FAERS Safety Report 24700705 (Version 1)
Quarter: 2024Q4

REPORT INFORMATION
  Report Type: Spontaneous
  Country: US (occurrence: None)
  Receive Date: 20241204
  Receipt Date: 20241204
  Transmission Date: 20250114
  Serious: No
  Sender: Public
  Company Number: None

PATIENT
  Age: 80 Year
  Sex: Female
  Weight: 110 kg

DRUGS (9)
  1. COSENTYX [Suspect]
     Active Substance: SECUKINUMAB
     Indication: Rheumatoid arthritis
     Dosage: OTHER FREQUENCY : INJECT ONE PEN SO EVERY 14 DAYS;?
     Route: 058
     Dates: start: 20221121
  2. CLONAZEPAM [Concomitant]
     Active Substance: CLONAZEPAM
  3. VILAZODONE [Concomitant]
     Active Substance: VILAZODONE
  4. ALBUTEROL [Concomitant]
     Active Substance: ALBUTEROL
  5. LEVOFLOXACIN [Concomitant]
     Active Substance: LEVOFLOXACIN
  6. DEXAMETHASONE [Concomitant]
     Active Substance: DEXAMETHASONE
  7. SULFASALAZINE [Concomitant]
     Active Substance: SULFASALAZINE
  8. TYLENOL [Concomitant]
     Active Substance: ACETAMINOPHEN
  9. VRAYLAR [Concomitant]
     Active Substance: CARIPRAZINE

REACTIONS (3)
  - Herpes zoster [None]
  - Bacterial infection [None]
  - Cerebrovascular accident [None]

NARRATIVE: CASE EVENT DATE: 20241119
